FAERS Safety Report 23203961 (Version 1)
Quarter: 2023Q4

REPORT INFORMATION
  Report Type: Spontaneous
  Country: CN (occurrence: CN)
  Receive Date: 20231120
  Receipt Date: 20231120
  Transmission Date: 20240109
  Serious: No
  Sender: FDA-Public Use
  Company Number: CN-ALKEM LABORATORIES LIMITED-CN-ALKEM-2023-05082

PATIENT
  Age: 21 Year
  Sex: Male

DRUGS (2)
  1. MINOCYCLINE [Suspect]
     Active Substance: MINOCYCLINE HYDROCHLORIDE
     Indication: Prurigo
     Dosage: 100 MILLIGRAM, BID
     Route: 048
  2. MINOCYCLINE [Suspect]
     Active Substance: MINOCYCLINE HYDROCHLORIDE
     Indication: Pigmentation disorder
     Dosage: RESTARTED, 100 MILLIGRAM, BID
     Route: 048

REACTIONS (4)
  - Skin lesion [Recovered/Resolved]
  - Disease recurrence [Recovered/Resolved]
  - Intentional dose omission [Unknown]
  - Treatment noncompliance [Unknown]
